FAERS Safety Report 5132527-1 (Version None)
Quarter: 2006Q4

REPORT INFORMATION
  Report Type: 
  Country: None (occurrence: None)
  Receive Date: 20061017
  Receipt Date: 20061003
  Transmission Date: 20070319
  Serious: Yes (Hospitalization)
  Sender: FDA-Public Use
  Company Number: FABR-11464

PATIENT
  Age: 69 Year
  Sex: Female
  Weight: 55 kg

DRUGS (15)
  1. FABRAZYME [Suspect]
     Indication: FABRY'S DISEASE
     Dosage: 50 MG Q2WKS IV
     Route: 042
     Dates: start: 20030929, end: 20060117
  2. ALACEPRIL [Concomitant]
  3. URSODESOXYCHOLIC ACID [Concomitant]
  4. ASPIRIN [Concomitant]
  5. SPIRONOLACTONE [Concomitant]
  6. FUROSEMIDE [Concomitant]
  7. LEVOTHYROXINE SODIUM [Concomitant]
  8. WARFARIN SODIUM [Concomitant]
  9. LANSOPRAZOLE [Concomitant]
  10. CANDESARTAN CILEXETIL [Concomitant]
  11. SULPIRIDE [Concomitant]
  12. MAGNESIUM OXIDE [Concomitant]
  13. ALLPURINOL [Concomitant]
  14. ZOLPIDEM TARTRATE [Concomitant]
  15. CALCIUM POLYSTYRENE SULFONATE [Concomitant]

REACTIONS (3)
  - CARDIAC FAILURE [None]
  - CHOLELITHIASIS [None]
  - CONDITION AGGRAVATED [None]
